FAERS Safety Report 22311622 (Version 1)
Quarter: 2023Q2

REPORT INFORMATION
  Report Type: Spontaneous
  Country: MX (occurrence: MX)
  Receive Date: 20230511
  Receipt Date: 20230511
  Transmission Date: 20230721
  Serious: Yes (Hospitalization)
  Sender: FDA-Public Use
  Company Number: MX-BEIGENE USA INC-BGN-2023-003996

PATIENT

DRUGS (1)
  1. BRUKINSA [Suspect]
     Active Substance: ZANUBRUTINIB
     Indication: Marginal zone lymphoma
     Dosage: UNK

REACTIONS (12)
  - Cystitis [Unknown]
  - Hospitalisation [Unknown]
  - Lymphopenia [Unknown]
  - C-reactive protein increased [Unknown]
  - Blood glucose increased [Unknown]
  - Metastatic lymphoma [Unknown]
  - Necrotic lymphadenopathy [Unknown]
  - Bladder hypertrophy [Unknown]
  - Hypotension [Unknown]
  - Tachycardia [Unknown]
  - Altered state of consciousness [Unknown]
  - General physical health deterioration [Unknown]
